FAERS Safety Report 9711456 (Version 1)
Quarter: 2013Q4

REPORT INFORMATION
  Report Type: Spontaneous
  Country: US (occurrence: None)
  Receive Date: 20131125
  Receipt Date: 20131125
  Transmission Date: 20140711
  Serious: No
  Sender: FDA-Public Use
  Company Number: None

PATIENT
  Age: 30 Year
  Sex: Female
  Weight: 79.38 kg

DRUGS (2)
  1. BENZONATATE [Suspect]
     Indication: SINUSITIS
     Dosage: 1-2 PILLS, UP TO 3 TIMES A DAY
     Route: 048
     Dates: start: 20131122, end: 20131124
  2. BENZONATATE [Suspect]
     Indication: COUGH
     Dosage: 1-2 PILLS, UP TO 3 TIMES A DAY
     Route: 048
     Dates: start: 20131122, end: 20131124

REACTIONS (3)
  - Visual impairment [None]
  - Nausea [None]
  - Headache [None]
